FAERS Safety Report 9999031 (Version 1)
Quarter: 2014Q1

REPORT INFORMATION
  Report Type: Spontaneous
  Country: US (occurrence: None)
  Receive Date: 20140311
  Receipt Date: 20140311
  Transmission Date: 20141002
  Serious: Yes (Life-Threatening, Hospitalization)
  Sender: FDA-Public Use
  Company Number: None

PATIENT
  Age: 62 Year
  Sex: Female

DRUGS (9)
  1. DOCETAXEL [Suspect]
     Indication: BREAST CANCER
     Dates: start: 20131227
  2. LOTEMAX [Concomitant]
  3. MAG OX [Concomitant]
  4. MORPHINE [Concomitant]
  5. ZOFRAN [Concomitant]
  6. PERCOCET [Concomitant]
  7. KCL [Concomitant]
  8. PHENERGAN [Concomitant]
  9. ACYCLOVIR [Concomitant]

REACTIONS (5)
  - Colitis [None]
  - Diarrhoea [None]
  - Abdominal pain [None]
  - Nausea [None]
  - Vomiting [None]
